FAERS Safety Report 14668013 (Version 2)
Quarter: 2018Q2

REPORT INFORMATION
  Report Type: Spontaneous
  Country: CA (occurrence: CA)
  Receive Date: 20180322
  Receipt Date: 20180404
  Transmission Date: 20180711
  Serious: Yes (Disabling)
  Sender: FDA-Public Use
  Company Number: CA-BAYER-2018-051446

PATIENT
  Age: 29 Year
  Sex: Female

DRUGS (2)
  1. MIRENA [Suspect]
     Active Substance: LEVONORGESTREL
     Dosage: 20 MCG/24HR, CONT
     Route: 015
  2. MIRENA [Suspect]
     Active Substance: LEVONORGESTREL

REACTIONS (6)
  - Surgery [Recovered/Resolved]
  - Device breakage [Recovered/Resolved]
  - Device dislocation [Recovered/Resolved]
  - Sleep disorder [Recovered/Resolved]
  - Abdominal pain upper [Recovered/Resolved]
  - Complication of device removal [Recovered/Resolved]
